FAERS Safety Report 14976679 (Version 1)
Quarter: 2018Q2

REPORT INFORMATION
  Report Type: Spontaneous
  Country: US (occurrence: US)
  Receive Date: 20180605
  Receipt Date: 20180605
  Transmission Date: 20180711
  Serious: No
  Sender: FDA-Public Use
  Company Number: US-ACTELION-A-NJ2018-173062

PATIENT
  Age: 25 Year
  Sex: Female

DRUGS (3)
  1. AMBRISENTAN [Concomitant]
     Active Substance: AMBRISENTAN
     Indication: PULMONARY HYPERTENSION
     Dosage: 10 MG, QD
     Route: 065
     Dates: start: 20151205
  2. UPTRAVI [Suspect]
     Active Substance: SELEXIPAG
     Indication: PRODUCT USED FOR UNKNOWN INDICATION
     Dosage: 1200 MCG, BID
     Route: 048
  3. ADCIRCA [Concomitant]
     Active Substance: TADALAFIL

REACTIONS (1)
  - Asthma [Unknown]
